FAERS Safety Report 4372909-9 (Version None)
Quarter: 2004Q2

REPORT INFORMATION
  Report Type: 
  Country: None (occurrence: None)
  Receive Date: 20040603
  Receipt Date: 20040526
  Transmission Date: 20050107
  Serious: Yes (Hospitalization)
  Sender: FDA-Public Use
  Company Number: LTI2004A00085

PATIENT
  Age: 66 Year
  Sex: Female

DRUGS (8)
  1. LANSOPRAZOLE [Suspect]
     Dosage: 15 MG (15 MG, 1 IN 1 D), ORAL
     Route: 048
     Dates: end: 20031101
  2. PIRACETAM (PIRACETAM) (TABLETS) [Suspect]
     Dosage: 2.4 G, ORAL
     Route: 048
  3. SPIRONOLACTONE [Suspect]
     Indication: HYPERTENSION
     Dosage: 2.4 G, ORAL
     Route: 048
  4. NEXEN (NIMESULIDE) (TABLETS) [Suspect]
     Indication: ARTHRALGIA
     Dosage: 2 DF, ORAL
     Route: 048
     Dates: start: 20030401, end: 20031101
  5. LYSANXIA (PRAZEPAM) (TABLETS) [Concomitant]
  6. EFFEXOR [Concomitant]
  7. UTROGESTRAN (PROGESTERONE) (CACHET) [Concomitant]
  8. OESTRODOSE (ESTRADIOL) (CREAM) [Concomitant]

REACTIONS (12)
  - ARTHRALGIA [None]
  - ASTHENIA [None]
  - GASTRIC ULCER [None]
  - HAEMATURIA [None]
  - MICROCYTIC ANAEMIA [None]
  - MUSCLE CRAMP [None]
  - NEPHROPATHY TOXIC [None]
  - POLYDIPSIA [None]
  - PRURITUS [None]
  - RENAL FAILURE ACUTE [None]
  - RENAL INTERSTITIAL FIBROSIS [None]
  - RENAL TUBULAR NECROSIS [None]
